FAERS Safety Report 16110387 (Version 1)
Quarter: 2019Q1

REPORT INFORMATION
  Report Type: Spontaneous
  Country: US (occurrence: US)
  Receive Date: 20190325
  Receipt Date: 20190325
  Transmission Date: 20190418
  Serious: No
  Sender: FDA-Public Use
  Company Number: US-JNJFOC-20190300021

PATIENT
  Sex: Female
  Weight: 61.69 kg

DRUGS (1)
  1. RISPERDAL [Suspect]
     Active Substance: RISPERIDONE
     Indication: ADVERSE DRUG REACTION
     Route: 065

REACTIONS (1)
  - Drug ineffective [Unknown]
